FAERS Safety Report 17351236 (Version 1)
Quarter: 2020Q1

REPORT INFORMATION
  Report Type: Spontaneous
  Country: IT (occurrence: IT)
  Receive Date: 20200130
  Receipt Date: 20200130
  Transmission Date: 20200409
  Serious: Yes (Other)
  Sender: FDA-Public Use
  Company Number: IT-TEVA-2020-IT-1176661

PATIENT
  Age: 23 Year
  Sex: Female

DRUGS (1)
  1. COPAXONE [Suspect]
     Active Substance: GLATIRAMER ACETATE
     Indication: MULTIPLE SCLEROSIS
     Dosage: 40 MICROGRAM 2 DAYS
     Route: 058
     Dates: start: 20190726

REACTIONS (1)
  - Demyelination [Unknown]

NARRATIVE: CASE EVENT DATE: 20191211
